FAERS Safety Report 22021205 (Version 5)
Quarter: 2024Q1

REPORT INFORMATION
  Report Type: Spontaneous
  Country: US (occurrence: US)
  Receive Date: 20230222
  Receipt Date: 20240301
  Transmission Date: 20240410
  Serious: No
  Sender: FDA-Public Use
  Company Number: US-SA-SAC20230221001368

PATIENT
  Age: 59 Year
  Sex: Male

DRUGS (2)
  1. DUPIXENT [Suspect]
     Active Substance: DUPILUMAB
     Indication: Nasal polyps
     Dosage: 200 MG, FREQUENCY: OTHER
     Route: 058
  2. DUPIXENT [Suspect]
     Active Substance: DUPILUMAB
     Indication: Nasal polyps
     Dosage: 300 MG, QOW
     Route: 058
     Dates: start: 202305

REACTIONS (7)
  - Eyelid rash [Unknown]
  - Foreign body sensation in eyes [Unknown]
  - Cheilitis [Unknown]
  - Skin erosion [Unknown]
  - Dry eye [Recovering/Resolving]
  - Burning sensation [Unknown]
  - Rash [Unknown]
